FAERS Safety Report 15602878 (Version 3)
Quarter: 2022Q3

REPORT INFORMATION
  Report Type: Report from Study
  Country: FR (occurrence: FR)
  Receive Date: 20181109
  Receipt Date: 20220801
  Transmission Date: 20221027
  Serious: Yes (Hospitalization)
  Sender: FDA-Public Use
  Company Number: FR-AMGEN-FRACT2018151885

PATIENT
  Age: 66 Year
  Sex: Female
  Weight: 84 kg

DRUGS (18)
  1. PANITUMUMAB [Suspect]
     Active Substance: PANITUMUMAB
     Indication: Colorectal cancer
     Dosage: 540 MILLIGRAM
     Route: 042
     Dates: start: 20180921
  2. FLUOROURACIL [Suspect]
     Active Substance: FLUOROURACIL
     Indication: Colorectal cancer
     Dosage: 4500 MG, UNK
     Route: 042
     Dates: start: 20180921
  3. IRINOTECAN [Suspect]
     Active Substance: IRINOTECAN
     Indication: Colorectal cancer
     Dosage: 300 MG, UNK
     Route: 042
     Dates: start: 20180921
  4. OXALIPLATIN [Suspect]
     Active Substance: OXALIPLATIN
     Indication: Colorectal cancer
     Dosage: 170 MG, UNK
     Route: 042
     Dates: start: 20180921
  5. LEVOLEUCOVORIN CALCIUM [Suspect]
     Active Substance: LEVOLEUCOVORIN CALCIUM
     Indication: Colorectal cancer
     Dosage: 400 MG, UNK
     Route: 042
     Dates: start: 20180921
  6. IRON [Concomitant]
     Active Substance: IRON
     Indication: Iron deficiency
     Dosage: UNK
     Route: 042
     Dates: start: 20181016
  7. ENALAPRIL\HYDROCHLOROTHIAZIDE [Concomitant]
     Active Substance: ENALAPRIL\HYDROCHLOROTHIAZIDE
     Dosage: UNK (20MG/5 MG), QD
  8. LERCANIDIPINE [Concomitant]
     Active Substance: LERCANIDIPINE
     Dosage: 20 MG, QD
  9. INNOHEP [Concomitant]
     Active Substance: TINZAPARIN SODIUM
     Indication: Arrhythmia
  10. INNOHEP [Concomitant]
     Active Substance: TINZAPARIN SODIUM
     Indication: Atrial fibrillation
  11. LERCANIDIPINE [Concomitant]
     Active Substance: LERCANIDIPINE
  12. ENALAPRIL [Concomitant]
     Active Substance: ENALAPRIL
  13. ROPIVACAINE HYDROCHLORIDE [Concomitant]
     Active Substance: ROPIVACAINE HYDROCHLORIDE
  14. FUROSEMIDE [Concomitant]
     Active Substance: FUROSEMIDE
     Dosage: UNK
     Dates: start: 20181101
  15. NEBIVOLOL [Concomitant]
     Active Substance: NEBIVOLOL
  16. FLECAINIDE [Concomitant]
     Active Substance: FLECAINIDE
  17. HEPARIN [Concomitant]
     Active Substance: HEPARIN SODIUM
  18. SODIUM BICARBONATE [Concomitant]
     Active Substance: SODIUM BICARBONATE

REACTIONS (2)
  - Colonic fistula [Recovered/Resolved]
  - Medical device site abscess [Recovered/Resolved]

NARRATIVE: CASE EVENT DATE: 20181022
